FAERS Safety Report 4359289-X (Version None)
Quarter: 2004Q2

REPORT INFORMATION
  Report Type: 
  Country: None (occurrence: None)
  Receive Date: 20040518
  Receipt Date: 20040424
  Transmission Date: 20050107
  Serious: Yes (Other)
  Sender: FDA-Public Use
  Company Number: PHEH2004US04627

PATIENT
  Age: 2 Year
  Sex: Male

DRUGS (3)
  1. ELIDEL [Suspect]
     Indication: DERMATITIS ATOPIC
     Dosage: UNK, PRN
     Route: 061
     Dates: start: 20030410, end: 20030701
  2. STEROIDS NOS [Concomitant]
     Dates: start: 20030201
  3. SUN BATH PROTECTIVE TANNING LOTION [Concomitant]

REACTIONS (6)
  - FALL [None]
  - GRANULOMA [None]
  - HAEMORRHAGE [None]
  - LACERATION [None]
  - NEOPLASM SKIN [None]
  - SCAB [None]
